FAERS Safety Report 15136455 (Version 4)
Quarter: 2020Q2

REPORT INFORMATION
  Report Type: Spontaneous
  Country: DE (occurrence: DE)
  Receive Date: 20180712
  Receipt Date: 20200601
  Transmission Date: 20200713
  Serious: Yes (Hospitalization, Other)
  Sender: FDA-Public Use
  Company Number: DE-ASCEND THERAPEUTICS-2051901

PATIENT
  Age: 59 Year
  Sex: Female
  Weight: 62 kg

DRUGS (3)
  1. GYNOKADIN DOSIERGEL (ESTRADIOL HEMIHYDRATE) (GEL) UNKNOWN [Suspect]
     Active Substance: ESTRADIOL HEMIHYDRATE
     Route: 062
  2. ESTROGEL [Suspect]
     Active Substance: ESTRADIOL
     Indication: HORMONE REPLACEMENT THERAPY
     Route: 062
  3. PROGESTAN (PROGESTERONE) [Suspect]
     Active Substance: PROGESTERONE
     Route: 048

REACTIONS (3)
  - Pelvic venous thrombosis [Recovering/Resolving]
  - Diverticular perforation [Recovered/Resolved]
  - Pulmonary embolism [Recovering/Resolving]

NARRATIVE: CASE EVENT DATE: 201805
